FAERS Safety Report 6948678 (Version 1)
Quarter: 2020Q3

REPORT INFORMATION
  Report Type: Report from Study
  Country: US (occurrence: US)
  Receive Date: 20090323
  Receipt Date: 20090323
  Transmission Date: 20201105
  Serious: Yes (Other)
  Sender: FDA-Public Use
  Company Number: US-ROCHE-621470

PATIENT
  Age: 60 Year
  Sex: Female

DRUGS (19)
  1. GLIPIZIDE. [Concomitant]
     Active Substance: GLIPIZIDE
  2. SKELAXIN [Concomitant]
     Active Substance: METAXALONE
  3. DEPAKOTE [Concomitant]
     Active Substance: DIVALPROEX SODIUM
  4. VICODIN [Concomitant]
     Active Substance: ACETAMINOPHEN\HYDROCODONE BITARTRATE
  5. IBANDRONIC ACID. [Suspect]
     Active Substance: IBANDRONIC ACID
     Indication: PRODUCT USED FOR UNKNOWN INDICATION
     Route: 065
  6. BENADRYL [Concomitant]
     Active Substance: DIPHENHYDRAMINE HYDROCHLORIDE
  7. FERROUS SULFATE. [Concomitant]
     Active Substance: FERROUS SULFATE
  8. CIPRO [Concomitant]
     Active Substance: CIPROFLOXACIN HYDROCHLORIDE
  9. MINOCYCLINE\MINOCYCLINE HYDROCHLORIDE [Concomitant]
     Active Substance: MINOCYCLINE HYDROCHLORIDE
     Dosage: DRUG: MINICICLINE
  10. METOCLOPRAMIDE. [Concomitant]
     Active Substance: METOCLOPRAMIDE
  11. METFORMIN [Concomitant]
     Active Substance: METFORMIN HYDROCHLORIDE
  12. OXYBUTYNIN. [Concomitant]
     Active Substance: OXYBUTYNIN CHLORIDE
     Dosage: DRUG : OXYBUTIN
  13. BACTRIM [Concomitant]
     Active Substance: SULFAMETHOXAZOLE\TRIMETHOPRIM
  14. POTASSIUM [Concomitant]
     Active Substance: POTASSIUM
  15. SIMVASTATIN. [Concomitant]
     Active Substance: SIMVASTATIN
  16. PREVACID [Concomitant]
     Active Substance: LANSOPRAZOLE
  17. FLUTICASONE. [Concomitant]
     Active Substance: FLUTICASONE
     Dosage: FORM: NOSE SPRAY
  18. SEROQUEL [Concomitant]
     Active Substance: QUETIAPINE FUMARATE
  19. LYRICA [Concomitant]
     Active Substance: PREGABALIN

REACTIONS (6)
  - Fall [None]
  - Loss of consciousness [Not Recovered/Not Resolved]
  - Oedema peripheral [Not Recovered/Not Resolved]
  - Cough [Not Recovered/Not Resolved]
  - Heart rate increased [Not Recovered/Not Resolved]
  - Influenza [Unknown]

NARRATIVE: CASE EVENT DATE: 20090303
